FAERS Safety Report 21837445 (Version 4)
Quarter: 2024Q2

REPORT INFORMATION
  Report Type: Spontaneous
  Country: US (occurrence: US)
  Receive Date: 20230109
  Receipt Date: 20240507
  Transmission Date: 20240716
  Serious: No
  Sender: FDA-Public Use
  Company Number: US-BRISTOL-MYERS SQUIBB COMPANY-2023-002681

PATIENT
  Age: 73 Year
  Sex: Male

DRUGS (2)
  1. REVLIMID [Suspect]
     Active Substance: LENALIDOMIDE
     Indication: Plasma cell myeloma
     Route: 048
  2. REVLIMID [Suspect]
     Active Substance: LENALIDOMIDE
     Dosage: 21
     Route: 048

REACTIONS (6)
  - Asthenia [Unknown]
  - Nausea [Unknown]
  - Pain in extremity [Unknown]
  - Contusion [Unknown]
  - Product dose omission issue [Unknown]
  - Product prescribing issue [Unknown]
